FAERS Safety Report 23957462 (Version 2)
Quarter: 2024Q3

REPORT INFORMATION
  Report Type: Report from Study
  Country: CA (occurrence: CA)
  Receive Date: 20240610
  Receipt Date: 20240903
  Transmission Date: 20241017
  Serious: Yes (Other)
  Sender: JOHNSON AND JOHNSON
  Company Number: CA-JNJFOC-20220842942

PATIENT
  Age: 36 Year
  Sex: Female

DRUGS (3)
  1. REMICADE [Suspect]
     Active Substance: INFLIXIMAB
     Indication: Crohn^s disease
     Dosage: EXPIRY DATE: 30-NOV-2026
     Route: 041
  2. REMICADE [Suspect]
     Active Substance: INFLIXIMAB
     Route: 041
  3. PANTOPRAZOLE SODIUM [Concomitant]
     Active Substance: PANTOPRAZOLE SODIUM
     Indication: Gastrointestinal disorder
     Dosage: BID

REACTIONS (13)
  - Abortion spontaneous [Recovered/Resolved]
  - Intestinal ulcer [Unknown]
  - Oesophageal ulcer [Unknown]
  - Exposure during pregnancy [Recovered/Resolved]
  - Weight decreased [Unknown]
  - Oesophageal pain [Not Recovered/Not Resolved]
  - Back pain [Unknown]
  - Helicobacter infection [Unknown]
  - Dyspepsia [Not Recovered/Not Resolved]
  - Fibromyalgia [Unknown]
  - Temporomandibular pain and dysfunction syndrome [Not Recovered/Not Resolved]
  - Anxiety [Unknown]
  - Anal fistula [Unknown]

NARRATIVE: CASE EVENT DATE: 20220101
